FAERS Safety Report 5952219-6 (Version None)
Quarter: 2008Q4

REPORT INFORMATION
  Report Type: 
  Country: None (occurrence: None)
  Receive Date: 20081113
  Receipt Date: 20081101
  Transmission Date: 20090506
  Serious: Yes (Other)
  Sender: FDA-Public Use
  Company Number: US-ELI_LILLY_AND_COMPANY-US200810004240

PATIENT
  Sex: Female
  Weight: 49.887 kg

DRUGS (14)
  1. CYMBALTA [Suspect]
     Dosage: 60 MG, UNK
  2. CYMBALTA [Suspect]
     Dosage: 20 MG, UNK
     Dates: start: 20081001
  3. CYMBALTA [Suspect]
     Dosage: 30 MG, DAILY (1/D)
     Dates: start: 20081001
  4. PHENERGAN HCL [Concomitant]
     Indication: NAUSEA
     Dosage: 0.5 UNK, AS NEEDED
     Route: 048
     Dates: start: 20070821
  5. ACETAMINOPHEN [Concomitant]
     Dosage: 650 MG, AS NEEDED
     Dates: start: 20080610
  6. LEVOTHYROXINE SODIUM [Concomitant]
     Dosage: 50 UG, DAILY (1/D)
     Route: 048
     Dates: start: 20080610
  7. COREG [Concomitant]
     Dosage: 12.5 MG, 2/D
     Dates: start: 20080725
  8. NEURONTIN [Concomitant]
     Dosage: 300 MG, EACH EVENING
     Route: 048
     Dates: start: 20080728
  9. MULTIVITAMIN                       /00831701/ [Concomitant]
     Dosage: 1 D/F, UNK
  10. RENAGEL [Concomitant]
     Dosage: 800 MG, UNK
     Dates: start: 20080814
  11. BENADRYL [Concomitant]
     Dosage: 50 MG, AS NEEDED
     Dates: start: 20081001
  12. DILAUDID [Concomitant]
     Dosage: UNK, AS NEEDED
     Route: 048
     Dates: start: 20081001
  13. REGLAN [Concomitant]
     Dosage: 10 MG, AS NEEDED
     Route: 048
     Dates: start: 20081001
  14. MS CONTIN [Concomitant]
     Dosage: 60 MG, 3/D
     Route: 048
     Dates: start: 20081001

REACTIONS (3)
  - CREATININE RENAL CLEARANCE DECREASED [None]
  - HALLUCINATION, VISUAL [None]
  - NEURODERMATITIS [None]
